FAERS Safety Report 26149838 (Version 1)
Quarter: 2025Q4

REPORT INFORMATION
  Report Type: Spontaneous
  Country: US (occurrence: US)
  Receive Date: 20251212
  Receipt Date: 20251212
  Transmission Date: 20260118
  Serious: Yes (Other)
  Sender: REGENERON
  Company Number: US-REGENERON PHARMACEUTICALS, INC.-2025-194835

PATIENT
  Sex: Female

DRUGS (1)
  1. EYLEA HD [Suspect]
     Active Substance: AFLIBERCEPT
     Indication: Diabetic retinal oedema
     Dosage: 8 MG, (FORMULATION: HD VIAL)
     Dates: start: 20241011

REACTIONS (1)
  - Eye infection [Unknown]

NARRATIVE: CASE EVENT DATE: 20251208
